FAERS Safety Report 11305860 (Version 2)
Quarter: 2015Q3

REPORT INFORMATION
  Report Type: Spontaneous
  Country: US (occurrence: US)
  Receive Date: 20150723
  Receipt Date: 20150819
  Transmission Date: 20151125
  Serious: No
  Sender: FDA-Public Use
  Company Number: US-AMGEN-USASP2015072154

PATIENT
  Age: 72 Year
  Sex: Female

DRUGS (1)
  1. ENBREL [Suspect]
     Active Substance: ETANERCEPT
     Indication: PRODUCT USED FOR UNKNOWN INDICATION
     Dosage: 12.5 MG, 2 TIMES/WK (SPLIT HER 25 MG DOSE IN HALF AND ADMINISTER EACH HALF ON TUESDAYS AND ON FRIDAY
     Route: 065
     Dates: start: 2005

REACTIONS (4)
  - Feeling abnormal [Unknown]
  - Muscle strain [Unknown]
  - Inappropriate schedule of drug administration [Unknown]
  - Drug intolerance [Unknown]
